FAERS Safety Report 5364676-7 (Version None)
Quarter: 2007Q2

REPORT INFORMATION
  Report Type: 
  Country: None (occurrence: None)
  Receive Date: 20070621
  Receipt Date: 20070615
  Transmission Date: 20071010
  Serious: Yes (Other)
  Sender: FDA-Public Use
  Company Number: PHBS2007BR10241

PATIENT
  Age: 29 Year
  Sex: Male
  Weight: 90 kg

DRUGS (1)
  1. FORADIL [Suspect]
     Indication: ASTHMA
     Dosage: 2 CAPSULES/DAY

REACTIONS (1)
  - MOUTH HAEMORRHAGE [None]
